FAERS Safety Report 6113173-X (Version None)
Quarter: 2009Q1

REPORT INFORMATION
  Report Type: 
  Country: None (occurrence: None)
  Receive Date: 20090312
  Receipt Date: 20090210
  Transmission Date: 20090719
  Serious: Yes (Other)
  Sender: FDA-Public Use
  Company Number: JP-PFIZER INC-2009164393

PATIENT

DRUGS (10)
  1. CHANTIX [Suspect]
     Indication: SMOKING CESSATION THERAPY
     Dosage: UNK
     Route: 048
     Dates: start: 20080715, end: 20080922
  2. MEVALOTIN [Concomitant]
     Dosage: UNK
     Route: 048
     Dates: start: 20071226
  3. ASPIRIN [Concomitant]
     Dosage: UNK
     Route: 048
     Dates: start: 20071226
  4. LASIX [Concomitant]
     Dosage: UNK
     Route: 048
     Dates: start: 20071226
  5. MICARDIS [Concomitant]
     Dosage: UNK
     Route: 048
     Dates: start: 20071226
  6. ALMARL [Concomitant]
     Dosage: UNK
     Route: 048
     Dates: start: 20071226
  7. ADALAT [Concomitant]
     Dosage: UNK
     Route: 048
     Dates: start: 20071226
  8. URSO 250 [Concomitant]
     Dosage: UNK
     Route: 048
  9. CARDENALIN [Concomitant]
     Dosage: UNK
     Dates: start: 20071226
  10. KREMEZIN [Concomitant]
     Dosage: UNK
     Dates: start: 20071226

REACTIONS (2)
  - ABDOMINAL DISCOMFORT [None]
  - REFLUX OESOPHAGITIS [None]
